FAERS Safety Report 4372259-0 (Version None)
Quarter: 2004Q2

REPORT INFORMATION
  Report Type: 
  Country: None (occurrence: None)
  Receive Date: 20040602
  Receipt Date: 20040602
  Transmission Date: 20050107
  Serious: Yes (Hospitalization)
  Sender: FDA-Public Use
  Company Number: None

PATIENT
  Age: 64 Year
  Sex: Male
  Weight: 88.5 kg

DRUGS (7)
  1. INTEGRILIN [Suspect]
     Dosage: 2 (7.9ML BOLUSES) 14ML/HR IV
     Route: 042
     Dates: start: 20040525, end: 20040526
  2. MIDAZOLAM HCL [Concomitant]
  3. FENTANYL [Concomitant]
  4. CEFAZOLIN [Concomitant]
  5. ASPIRIN [Concomitant]
  6. PEPCID [Concomitant]
  7. CLOPIDOGREL BISULFATE [Concomitant]

REACTIONS (4)
  - ECCHYMOSIS [None]
  - POST PROCEDURAL COMPLICATION [None]
  - POST PROCEDURAL HAEMATOMA [None]
  - WOUND SECRETION [None]
